FAERS Safety Report 7863392-7 (Version None)
Quarter: 2011Q4

REPORT INFORMATION
  Report Type: 
  Country: None (occurrence: None)
  Receive Date: 20111027
  Receipt Date: 20101203
  Transmission Date: 20120403
  Serious: No
  Sender: FDA-Public Use
  Company Number: US-AMGEN-USASP2010007413

PATIENT
  Age: 64 Year
  Sex: Male

DRUGS (2)
  1. ENBREL [Suspect]
     Indication: RHEUMATOID ARTHRITIS
     Dosage: 25 MG, UNK
     Dates: start: 20101115
  2. METHOTREXATE [Concomitant]

REACTIONS (1)
  - INJECTION SITE PAIN [None]
